FAERS Safety Report 15793935 (Version 4)
Quarter: 2019Q4

REPORT INFORMATION
  Report Type: Report from Study
  Country: US (occurrence: US)
  Receive Date: 20190107
  Receipt Date: 20191126
  Transmission Date: 20200122
  Serious: Yes (Other)
  Sender: FDA-Public Use
  Company Number: US-SA-2019SA001962

PATIENT
  Age: 60 Year
  Sex: Female

DRUGS (2)
  1. INSULIN GLULISINE [Suspect]
     Active Substance: INSULIN GLULISINE
     Indication: TYPE 2 DIABETES MELLITUS
     Dosage: 10 UNITS BREAKFAST, 15 UNITS LUNCH AND 19 UNITS DINNER, TID
  2. INSULIN GLULISINE [Suspect]
     Active Substance: INSULIN GLULISINE
     Indication: HYPERGLYCAEMIA
     Dosage: 46 U, QD
     Route: 058

REACTIONS (3)
  - Systemic lupus erythematosus [Unknown]
  - Bronchitis [Not Recovered/Not Resolved]
  - Fatigue [Unknown]
